FAERS Safety Report 4672873-9 (Version None)
Quarter: 2005Q2

REPORT INFORMATION
  Report Type: 
  Country: None (occurrence: None)
  Receive Date: 20050523
  Receipt Date: 20050509
  Transmission Date: 20051028
  Serious: Yes (Hospitalization, Other)
  Sender: FDA-Public Use
  Company Number: 2005072156

PATIENT
  Sex: Female
  Weight: 54.4316 kg

DRUGS (3)
  1. CELEBREX [Suspect]
     Indication: PAIN
     Dosage: 200 MG (200 MG 1 IN 1 D) ORAL
     Route: 048
  2. NISOLDIPINE [Concomitant]
  3. DYAZIDE [Concomitant]

REACTIONS (5)
  - GINGIVAL BLISTER [None]
  - GINGIVAL DISORDER [None]
  - HIP ARTHROPLASTY [None]
  - PAIN [None]
  - TREATMENT NONCOMPLIANCE [None]
